FAERS Safety Report 11253535 (Version 6)
Quarter: 2015Q3

REPORT INFORMATION
  Report Type: Report from Study
  Country: US (occurrence: US)
  Receive Date: 20150709
  Receipt Date: 20150918
  Transmission Date: 20151125
  Serious: Yes (Hospitalization, Other)
  Sender: FDA-Public Use
  Company Number: US-GILEAD-2015-0162245

PATIENT
  Age: 46 Year
  Sex: Female
  Weight: 68 kg

DRUGS (8)
  1. AMBRISENTAN [Suspect]
     Active Substance: AMBRISENTAN
     Dosage: UNK
     Route: 065
  2. AMBRISENTAN [Suspect]
     Active Substance: AMBRISENTAN
     Indication: PULMONARY HYPERTENSION
     Dosage: 10 MG, QD
     Route: 042
     Dates: start: 20130404
  3. REMODULIN [Suspect]
     Active Substance: TREPROSTINIL
     Indication: PULMONARY HYPERTENSION
     Dosage: .092 MCG/KG UNK
     Route: 041
     Dates: start: 20140713
  4. REMODULIN [Suspect]
     Active Substance: TREPROSTINIL
     Dosage: .092 UG/KG, UNK
     Route: 042
     Dates: start: 20131211
  5. REMODULIN [Suspect]
     Active Substance: TREPROSTINIL
     Dosage: .022 UG/KG, UNK
     Route: 042
  6. REVATIO [Concomitant]
     Active Substance: SILDENAFIL CITRATE
  7. REMODULIN [Suspect]
     Active Substance: TREPROSTINIL
     Dosage: .092 UG/KG, UNK
     Route: 042
     Dates: start: 20140806
  8. AMBRISENTAN [Suspect]
     Active Substance: AMBRISENTAN
     Dosage: 5 MG, QD
     Route: 065
     Dates: start: 20110209

REACTIONS (17)
  - Injection site irritation [Unknown]
  - Pyrexia [Unknown]
  - Blindness [Unknown]
  - Infusion site erythema [Unknown]
  - Infusion site warmth [Unknown]
  - Dizziness [Unknown]
  - Pain [Unknown]
  - Phlebitis [Unknown]
  - Infusion site pain [Unknown]
  - Local swelling [Unknown]
  - Infusion site discharge [Unknown]
  - Rash pruritic [Unknown]
  - Tenderness [Unknown]
  - Chills [Unknown]
  - Dyspnoea [Unknown]
  - Abscess [Unknown]
  - Infusion site swelling [Unknown]

NARRATIVE: CASE EVENT DATE: 20150702
